FAERS Safety Report 4440757-7 (Version None)
Quarter: 2004Q3

REPORT INFORMATION
  Report Type: 
  Country: None (occurrence: None)
  Receive Date: 20040830
  Receipt Date: 20040823
  Transmission Date: 20050211
  Serious: Yes (Other)
  Sender: FDA-Public Use
  Company Number: 2004-02865

PATIENT
  Age: 18 Year
  Sex: Female

DRUGS (2)
  1. TUBERSOL [Suspect]
     Indication: IMMUNISATION
     Dates: start: 20040823
  2. MENOMUNE-A/C/Y/W-135 [Suspect]
     Indication: IMMUNISATION
     Dates: start: 20040823

REACTIONS (5)
  - ASTHENIA [None]
  - BRADYCARDIA [None]
  - DIZZINESS [None]
  - DYSPNOEA [None]
  - THROAT TIGHTNESS [None]
